FAERS Safety Report 6633664-2 (Version None)
Quarter: 2010Q1

REPORT INFORMATION
  Report Type: 
  Country: None (occurrence: None)
  Receive Date: 20100312
  Receipt Date: 20100305
  Transmission Date: 20100710
  Serious: Yes (Hospitalization)
  Sender: FDA-Public Use
  Company Number: US-AMGEN-QUU397958

PATIENT
  Sex: Female

DRUGS (1)
  1. ENBREL [Suspect]
     Indication: PSORIASIS
     Route: 058
     Dates: start: 20040401

REACTIONS (6)
  - ABDOMINAL ADHESIONS [None]
  - ABDOMINAL PAIN [None]
  - CHOLECYSTECTOMY [None]
  - SALPINGITIS [None]
  - UTERINE CYST [None]
  - VAGINAL HAEMORRHAGE [None]
